FAERS Safety Report 5397008-9 (Version None)
Quarter: 2007Q3

REPORT INFORMATION
  Report Type: 
  Country: None (occurrence: None)
  Receive Date: 20070725
  Receipt Date: 20070723
  Transmission Date: 20080115
  Serious: Yes (Hospitalization)
  Sender: FDA-Public Use
  Company Number: AU-ROXANE LABORATORIES, INC-2005-BP-05606AU

PATIENT
  Sex: Male
  Weight: 78 kg

DRUGS (27)
  1. TIPRANAVIR / RITONAVIR CAPSULES, SOFTGELATIN [Suspect]
     Indication: HIV INFECTION
     Dosage: TPV/RTV 1000/400 MG/MG
     Route: 048
     Dates: start: 20041119, end: 20050427
  2. WARFARIN SODIUM [Suspect]
     Indication: ANTICOAGULANT THERAPY
     Route: 048
     Dates: start: 20050223
  3. AUGMENTIN '125' [Suspect]
     Indication: ANTIBIOTIC PROPHYLAXIS
     Route: 048
     Dates: start: 20050321, end: 20050404
  4. FLUCONAZOLE [Suspect]
     Indication: ANTIBIOTIC PROPHYLAXIS
     Route: 048
     Dates: start: 20050321, end: 20050404
  5. LAMIVUDINE [Concomitant]
     Indication: HIV INFECTION
     Route: 048
     Dates: start: 20041119, end: 20050404
  6. CARVEDILOL [Concomitant]
     Indication: AORTIC VALVE INCOMPETENCE
     Route: 048
     Dates: start: 20020801
  7. FLUDROCORTISONE ACETATE [Concomitant]
     Indication: ADDISON'S DISEASE
     Route: 048
     Dates: start: 20030401
  8. PRAVASTATIN [Concomitant]
     Indication: PROPHYLAXIS
     Route: 048
     Dates: start: 20040725
  9. MIRTAZAPINE [Concomitant]
     Indication: INSOMNIA
     Route: 048
     Dates: start: 19980101
  10. CENTRUM [Concomitant]
     Indication: MEDICAL DIET
     Route: 048
     Dates: start: 20040727
  11. FELODOPINE [Concomitant]
     Indication: HYPERTENSION
     Route: 048
     Dates: start: 20041105, end: 20050404
  12. IRON SUPPLEMENT [Concomitant]
     Indication: MEDICAL DIET
     Route: 048
     Dates: start: 20030716, end: 20050501
  13. ASCORBIC ACID [Concomitant]
     Indication: VITAMIN SUPPLEMENTATION
     Route: 048
     Dates: start: 20030716, end: 20031201
  14. LOSEC [Concomitant]
     Indication: PROPHYLAXIS
     Route: 048
     Dates: start: 20041104, end: 20050505
  15. THIAMINE [Concomitant]
     Indication: MEDICAL DIET
     Route: 048
     Dates: start: 20030607, end: 20050505
  16. CORTISONE ACETATE [Concomitant]
     Indication: ADDISON'S DISEASE
     Route: 048
     Dates: start: 20030814
  17. AZITHROMYCIN [Concomitant]
     Indication: INFECTION PROPHYLAXIS
     Route: 048
     Dates: start: 19970401
  18. BACTRIM [Concomitant]
     Indication: ANTIFUNGAL PROPHYLAXIS
     Dosage: 400/45 MG/MG
     Route: 048
     Dates: start: 20020719
  19. UK 427/PLACEBO [Concomitant]
     Indication: HIV INFECTION
     Dosage: 150 OR 300 MG
     Route: 048
     Dates: start: 20050427
  20. LAMIVUDINE [Concomitant]
     Route: 048
     Dates: start: 20050407
  21. ENFUVIRTIDE [Concomitant]
     Indication: HIV INFECTION
     Route: 058
     Dates: start: 20050427
  22. DIDANOSINE [Concomitant]
     Indication: HIV INFECTION
     Route: 048
     Dates: start: 20050427
  23. LOPINAVIR AND RITONAVIR [Concomitant]
     Indication: HIV INFECTION
     Route: 048
     Dates: start: 20050427
  24. HYDRAZOLE CREAM [Concomitant]
     Indication: DRY SKIN
     Route: 061
     Dates: start: 20050405
  25. DIDANOSINE [Concomitant]
     Route: 048
     Dates: start: 20050427
  26. AUGMENTIN DUO FORT [Concomitant]
     Indication: ANTIBIOTIC PROPHYLAXIS
     Route: 048
     Dates: start: 20050408, end: 20050506
  27. FLUCONAZOLE [Concomitant]
     Route: 048
     Dates: start: 20050411, end: 20050506

REACTIONS (9)
  - DEHYDRATION [None]
  - DRY SKIN [None]
  - FAECES DISCOLOURED [None]
  - GASTROINTESTINAL HAEMORRHAGE [None]
  - HYPOTENSION [None]
  - MALAISE [None]
  - PYREXIA [None]
  - RENAL FAILURE ACUTE [None]
  - RENAL IMPAIRMENT [None]
